FAERS Safety Report 12212800 (Version 2)
Quarter: 2016Q2

REPORT INFORMATION
  Report Type: Spontaneous
  Country: US (occurrence: US)
  Receive Date: 20160328
  Receipt Date: 20160509
  Transmission Date: 20160815
  Serious: No
  Sender: FDA-Public Use
  Company Number: US-009507513-1603USA011987

PATIENT
  Sex: Female

DRUGS (1)
  1. DULERA [Suspect]
     Active Substance: FORMOTEROL FUMARATE DIHYDRATE\MOMETASONE FUROATE
     Indication: BRONCHIAL HYPERREACTIVITY
     Dosage: TOTAL DAILY DOSE 4 PUFFS
     Route: 055

REACTIONS (4)
  - Incorrect dose administered [Unknown]
  - Cough [Not Recovered/Not Resolved]
  - Product quality issue [Unknown]
  - Productive cough [Not Recovered/Not Resolved]

NARRATIVE: CASE EVENT DATE: 20160321
